FAERS Safety Report 25612007 (Version 1)
Quarter: 2025Q3

REPORT INFORMATION
  Report Type: Report from Study
  Country: EU (occurrence: EU)
  Receive Date: 20250728
  Receipt Date: 20250728
  Transmission Date: 20251020
  Serious: Yes (Other)
  Sender: MYLAN
  Company Number: EU-ELI_LILLY_AND_COMPANY-ES202505021558

PATIENT
  Age: 51 Year
  Sex: Female

DRUGS (5)
  1. FENTANYL [Suspect]
     Active Substance: FENTANYL
     Indication: Pain
  2. ABEMACICLIB [Suspect]
     Active Substance: ABEMACICLIB
     Indication: Breast cancer
  3. ABEMACICLIB [Suspect]
     Active Substance: ABEMACICLIB
  4. ABEMACICLIB [Suspect]
     Active Substance: ABEMACICLIB
  5. LETROZOLE [Concomitant]
     Active Substance: LETROZOLE
     Indication: Breast cancer

REACTIONS (5)
  - Malignant neoplasm progression [Recovered/Resolved]
  - Breast pain [Recovering/Resolving]
  - Pain in extremity [Recovering/Resolving]
  - Constipation [Recovering/Resolving]
  - Diarrhoea [Recovered/Resolved]
